FAERS Safety Report 9343686 (Version 2)
Quarter: 2014Q1

REPORT INFORMATION
  Report Type: Report from Study
  Country: IN (occurrence: IN)
  Receive Date: 20130612
  Receipt Date: 20140331
  Transmission Date: 20141002
  Serious: Yes (Disabling)
  Sender: FDA-Public Use
  Company Number: PHHO2013IN007542

PATIENT
  Age: 59 Year
  Sex: Female
  Weight: 105 kg

DRUGS (9)
  1. ACLASTA [Suspect]
     Indication: OSTEOPOROSIS
     Dosage: 5 MG/100 ML
     Route: 042
  2. ACLASTA [Suspect]
     Dosage: 5 MG/100 ML
     Route: 042
  3. ACLASTA [Suspect]
     Dosage: 5 MG/100 ML
     Route: 042
  4. VALENT [Concomitant]
     Indication: HYPERTENSION
  5. DYTOR [Concomitant]
     Indication: CARDIAC DISORDER
  6. RABLET [Concomitant]
     Indication: HYPERCHLORHYDRIA
     Dosage: 20 MG
     Route: 048
  7. FOLISTER [Concomitant]
     Indication: FOLATE DEFICIENCY
     Dosage: 7.5 MG
     Route: 048
  8. FOLVITE [Concomitant]
     Indication: ANAEMIA
     Dosage: 5 MG
     Route: 048
  9. FEBUSTAT [Concomitant]
     Indication: HYPERURICAEMIA
     Dosage: 40 MG
     Route: 048

REACTIONS (6)
  - Gait disturbance [Not Recovered/Not Resolved]
  - Hypokinesia [Not Recovered/Not Resolved]
  - Back pain [Not Recovered/Not Resolved]
  - Arthralgia [Not Recovered/Not Resolved]
  - Pain in extremity [Not Recovered/Not Resolved]
  - Bone pain [Not Recovered/Not Resolved]
